FAERS Safety Report 4913498-7 (Version None)
Quarter: 2006Q1

REPORT INFORMATION
  Report Type: 
  Country: None (occurrence: None)
  Receive Date: 20060216
  Receipt Date: 20060206
  Transmission Date: 20060701
  Serious: Yes (Hospitalization)
  Sender: FDA-Public Use
  Company Number: SE-JNJFOC-20060201657

PATIENT
  Age: 51 Year
  Sex: Female

DRUGS (9)
  1. REMICADE [Suspect]
     Indication: POLYARTHRITIS
     Route: 042
  2. ENBREL [Suspect]
     Indication: RHEUMATOID ARTHRITIS
     Route: 058
  3. METHOTREXATE [Suspect]
     Route: 048
  4. METHOTREXATE [Suspect]
     Indication: POLYARTHRITIS
     Route: 048
  5. HUMIRA [Suspect]
     Indication: RHEUMATOID ARTHRITIS
     Route: 042
  6. FOLACIN [Concomitant]
     Route: 065
  7. FOLACIN [Concomitant]
     Route: 065
  8. BEHEPAN [Concomitant]
     Route: 065
  9. MYOCRISIN [Concomitant]
     Route: 065

REACTIONS (3)
  - DRUG INEFFECTIVE [None]
  - EOSINOPHILIA [None]
  - TONGUE NEOPLASM MALIGNANT STAGE UNSPECIFIED [None]
